FAERS Safety Report 19117424 (Version 1)
Quarter: 2021Q2

REPORT INFORMATION
  Report Type: Spontaneous
  Country: CN (occurrence: CN)
  Receive Date: 20210409
  Receipt Date: 20210409
  Transmission Date: 20210717
  Serious: Yes (Other)
  Sender: FDA-Public Use
  Company Number: CN-PFIZER INC-2021358319

PATIENT
  Age: 45 Year
  Sex: Female

DRUGS (1)
  1. XALKORI [Suspect]
     Active Substance: CRIZOTINIB
     Dosage: UNK
     Dates: start: 20191207

REACTIONS (3)
  - Blood lactate dehydrogenase increased [Recovering/Resolving]
  - Alpha hydroxybutyrate dehydrogenase increased [Recovering/Resolving]
  - Blood creatine phosphokinase increased [Recovering/Resolving]

NARRATIVE: CASE EVENT DATE: 20191207
